FAERS Safety Report 10466461 (Version 3)
Quarter: 2015Q1

REPORT INFORMATION
  Report Type: Spontaneous
  Country: DE (occurrence: DE)
  Receive Date: 20140922
  Receipt Date: 20150224
  Transmission Date: 20150720
  Serious: Yes (Hospitalization, Other)
  Sender: FDA-Public Use
  Company Number: DE-AMGEN-DEUSP2014071784

PATIENT
  Age: 60 Year
  Sex: Female

DRUGS (3)
  1. ENBREL [Suspect]
     Active Substance: ETANERCEPT
     Indication: RHEUMATOID ARTHRITIS
     Dosage: 25 MG, 2X/WEEK
     Route: 065
     Dates: start: 20140414
  2. PREDNISOLON                        /00016201/ [Concomitant]
     Active Substance: PREDNISOLONE
     Dosage: 7.5 MG, DAILY
  3. ARCOXIA [Concomitant]
     Active Substance: ETORICOXIB
     Dosage: 60 MG, DAILY

REACTIONS (4)
  - Inflammatory marker increased [Recovered/Resolved]
  - Pain [Unknown]
  - Drug effect decreased [Recovered/Resolved]
  - Fracture [Recovered/Resolved]
